FAERS Safety Report 5214309-5 (Version None)
Quarter: 2007Q1

REPORT INFORMATION
  Report Type: 
  Country: None (occurrence: None)
  Receive Date: 20070122
  Receipt Date: 20070115
  Transmission Date: 20070707
  Serious: Yes (Other)
  Sender: FDA-Public Use
  Company Number: GB-MERCK-0701GBR00094

PATIENT
  Age: 49 Year
  Sex: Female
  Weight: 70 kg

DRUGS (2)
  1. ZOCOR [Suspect]
     Route: 048
     Dates: start: 20040120
  2. ZOCOR [Suspect]
     Route: 048
     Dates: end: 20060525

REACTIONS (4)
  - DEPRESSED MOOD [None]
  - MALAISE [None]
  - NIGHTMARE [None]
  - SLEEP DISORDER [None]
